FAERS Safety Report 7540492-2 (Version None)
Quarter: 2011Q2

REPORT INFORMATION
  Report Type: 
  Country: None (occurrence: None)
  Receive Date: 20110610
  Receipt Date: 20101216
  Transmission Date: 20111010
  Serious: Yes (Hospitalization)
  Sender: FDA-Public Use
  Company Number: A0903207A

PATIENT
  Age: 51 Year
  Sex: Male

DRUGS (1)
  1. ROSIGLITAZONE MALEATE [Suspect]
     Indication: DIABETES MELLITUS
     Route: 048
     Dates: end: 20100101

REACTIONS (4)
  - PERIPHERAL VASCULAR DISORDER [None]
  - MYOCARDIAL INFARCTION [None]
  - HYPERTENSION [None]
  - CORONARY ARTERY DISEASE [None]
